FAERS Safety Report 7545042-2 (Version None)
Quarter: 2011Q2

REPORT INFORMATION
  Report Type: 
  Country: None (occurrence: None)
  Receive Date: 20110614
  Receipt Date: 20110531
  Transmission Date: 20111010
  Serious: Yes (Hospitalization, Other)
  Sender: FDA-Public Use
  Company Number: US-BAYER-201039080NA

PATIENT
  Age: 29 Year
  Sex: Female
  Weight: 78.912 kg

DRUGS (8)
  1. MOTRIN [Concomitant]
     Dosage: UNK UNK, BID
  2. LEXAPRO [Concomitant]
     Dosage: 20 MG, QD
     Route: 048
  3. BISMUTH SUBSALICYLATE [Concomitant]
     Indication: DYSPEPSIA
  4. MAALOX [Concomitant]
     Indication: DYSPEPSIA
  5. ORTHO TRI-CYCLEN LO [Concomitant]
     Dosage: 1 DF, QD
     Route: 048
  6. YAZ [Suspect]
     Indication: PRODUCT USED FOR UNKNOWN INDICATION
     Dosage: UNK UNK, QD
     Route: 048
     Dates: start: 20060601, end: 20090101
  7. PRILOSEC [Concomitant]
     Indication: DYSPEPSIA
  8. STACKERS [Concomitant]
     Indication: OVERWEIGHT

REACTIONS (4)
  - GALLBLADDER NON-FUNCTIONING [None]
  - CHOLECYSTITIS CHRONIC [None]
  - CHOLELITHIASIS [None]
  - CHOLECYSTITIS ACUTE [None]
